FAERS Safety Report 9016016 (Version 1)
Quarter: 2013Q1

REPORT INFORMATION
  Report Type: Report from Study
  Country: AU (occurrence: AU)
  Receive Date: 20130116
  Receipt Date: 20130116
  Transmission Date: 20140127
  Serious: Yes (Other)
  Sender: FDA-Public Use
  Company Number: AU-VERTEX PHARMACEUTICALS INC.-2012-025976

PATIENT
  Age: 45 Year
  Sex: Female
  Weight: 57.6 kg

DRUGS (8)
  1. VX-950 (TELAPREVIR) [Suspect]
     Indication: CHRONIC HEPATITIS C
     Dosage: 750 MG, TID
     Route: 048
     Dates: start: 20120921, end: 20121212
  2. RIBAVIRIN [Suspect]
     Indication: CHRONIC HEPATITIS C
     Dosage: 1000 MG, QD
     Route: 048
     Dates: start: 20120921, end: 20121220
  3. RIBAVIRIN [Suspect]
     Dosage: 1000 MG, QD
     Route: 048
     Dates: start: 201212
  4. PEGINTERFERON ALFA 2A [Suspect]
     Indication: CHRONIC HEPATITIS C
     Dosage: 180 ?G, QW
     Route: 058
     Dates: start: 20120928
  5. PEGINTERFERON ALFA 2A [Suspect]
     Dosage: 180 ?G, UNK
     Route: 058
     Dates: start: 20120921
  6. CLARITYN-S [Concomitant]
  7. PHENERGAN (PROMETHAZINE) [Concomitant]
  8. PREDNISOLONE [Concomitant]
     Route: 048

REACTIONS (2)
  - Eczema [Not Recovered/Not Resolved]
  - Rash maculo-papular [Recovered/Resolved]
